FAERS Safety Report 18313078 (Version 1)
Quarter: 2020Q3

REPORT INFORMATION
  Report Type: Report from Study
  Country: NL (occurrence: NL)
  Receive Date: 20200925
  Receipt Date: 20200925
  Transmission Date: 20201103
  Serious: Yes (Other)
  Sender: FDA-Public Use
  Company Number: NL-TEVA-2019-NL-1162638

PATIENT
  Age: 56 Year
  Sex: Female

DRUGS (3)
  1. METHOTREXATE. [Suspect]
     Active Substance: METHOTREXATE
     Dosage: THERAPY START DATE + END DATE : ASKU
     Route: 065
  2. SARILUMAB [Suspect]
     Active Substance: SARILUMAB
     Indication: RHEUMATOID ARTHRITIS
     Dosage: 200 MG, QOW
     Dates: start: 20190418, end: 20191112
  3. FERROFUMARAAT [Concomitant]
     Active Substance: FERROUS FUMARATE
     Dosage: UNK, THERAPY START DATE AND END DATE : ASKU

REACTIONS (8)
  - Anastomotic ulcer [Recovered/Resolved]
  - Post procedural infection [Recovered/Resolved]
  - Abdominal pain upper [Recovered/Resolved]
  - Thrombocytopenia [Recovered/Resolved]
  - Arthralgia [Recovered/Resolved]
  - Vomiting [Recovered/Resolved]
  - Neutropenia [Unknown]
  - Liver function test increased [Not Recovered/Not Resolved]

NARRATIVE: CASE EVENT DATE: 20190519
